FAERS Safety Report 21891562 (Version 1)
Quarter: 2023Q1

REPORT INFORMATION
  Report Type: Spontaneous
  Country: US (occurrence: US)
  Receive Date: 20230120
  Receipt Date: 20230120
  Transmission Date: 20230418
  Serious: Yes (Other)
  Sender: FDA-Public Use
  Company Number: US-AMGEN-USASP2023006158

PATIENT
  Age: 60 Year
  Sex: Female

DRUGS (2)
  1. BEVACIZUMAB [Suspect]
     Active Substance: BEVACIZUMAB
     Indication: Squamous cell carcinoma of the cervix
     Dosage: UNK
     Route: 065
  2. PACLITAXEL [Concomitant]
     Active Substance: PACLITAXEL
     Indication: Squamous cell carcinoma of the cervix
     Dosage: UNK

REACTIONS (7)
  - Cervix carcinoma recurrent [Recovering/Resolving]
  - Pancreatitis acute [Recovered/Resolved]
  - Adrenal insufficiency [Recovered/Resolved]
  - Thrombocytopenia [Recovered/Resolved]
  - Therapy partial responder [Unknown]
  - Colitis [Recovered/Resolved]
  - Anaemia [Recovered/Resolved]
